FAERS Safety Report 9099912 (Version 1)
Quarter: 2013Q1

REPORT INFORMATION
  Report Type: Spontaneous
  Country: FR (occurrence: FR)
  Receive Date: 20130214
  Receipt Date: 20130214
  Transmission Date: 20140127
  Serious: Yes (Life-Threatening, Other)
  Sender: FDA-Public Use
  Company Number: FR-PFIZER INC-2013053849

PATIENT
  Age: 68 Year
  Sex: Female

DRUGS (12)
  1. ADRIBLASTINE [Suspect]
     Indication: HODGKIN^S DISEASE
     Dosage: 43 MG, 1X/DAY
     Route: 042
     Dates: start: 20120305, end: 20120820
  2. BLEOMYCINE BELLON [Suspect]
     Indication: HODGKIN^S DISEASE
     Dosage: 18 MG, 1X/DAY
     Route: 041
     Dates: start: 20120305, end: 20120820
  3. VELBE [Suspect]
     Indication: HODGKIN^S DISEASE
     Dosage: 1 DF, 1X/DAY
     Route: 041
     Dates: start: 20120305, end: 20120820
  4. DETICENE [Suspect]
     Indication: HODGKIN^S DISEASE
     Dosage: 645 MG, 1X/DAY
     Route: 041
     Dates: start: 20120305, end: 20120820
  5. SOTALOL [Concomitant]
  6. ESIDREX [Concomitant]
  7. SEVIKAR [Concomitant]
  8. LEVOTHYROX [Concomitant]
  9. STILNOX [Concomitant]
  10. ROCEPHINE [Concomitant]
     Indication: PNEUMONIA
     Dosage: UNK
     Dates: start: 20120904
  11. FORTUM [Concomitant]
     Indication: PNEUMONIA
     Dosage: 4 G, 1X/DAY
     Dates: start: 20120904
  12. RULID [Concomitant]
     Indication: PNEUMONIA
     Dosage: 150 (UNIT NOT PROVIDED) TWO TIMES
     Dates: start: 20120904

REACTIONS (2)
  - Pulmonary fibrosis [Not Recovered/Not Resolved]
  - Pneumonia [Unknown]
